FAERS Safety Report 23510025 (Version 2)
Quarter: 2024Q2

REPORT INFORMATION
  Report Type: Spontaneous
  Country: US (occurrence: US)
  Receive Date: 20240211
  Receipt Date: 20240527
  Transmission Date: 20240716
  Serious: Yes (Other)
  Sender: FDA-Public Use
  Company Number: US-SA-SAC20240206000817

PATIENT
  Age: 63 Year
  Sex: Male
  Weight: 84 kg

DRUGS (1)
  1. CAPRELSA [Suspect]
     Active Substance: VANDETANIB
     Indication: Thyroid cancer
     Dosage: 300 MG, QD
     Route: 048
     Dates: start: 20231220

REACTIONS (9)
  - Hypothyroidism [Unknown]
  - Stomatitis [Unknown]
  - Diarrhoea [Unknown]
  - Rash [Recovered/Resolved]
  - Skin exfoliation [Unknown]
  - Sunburn [Unknown]
  - Immune system disorder [Not Recovered/Not Resolved]
  - Eye infection [Unknown]
  - Localised infection [Unknown]
